FAERS Safety Report 9753875 (Version 1)
Quarter: 2013Q4

REPORT INFORMATION
  Report Type: Spontaneous
  Country: US (occurrence: US)
  Receive Date: 20131213
  Receipt Date: 20131213
  Transmission Date: 20140711
  Serious: No
  Sender: FDA-Public Use
  Company Number: US-GILEAD-2010-0027671

PATIENT
  Sex: Female
  Weight: 84.82 kg

DRUGS (4)
  1. LETAIRIS [Suspect]
     Indication: PULMONARY ARTERIAL HYPERTENSION
     Route: 048
     Dates: start: 20090725
  2. SINGULAIR [Concomitant]
  3. PROVENTIL [Concomitant]
  4. ADVAIR [Concomitant]

REACTIONS (3)
  - Cough [Unknown]
  - Dizziness [Unknown]
  - Nasal congestion [Unknown]
